FAERS Safety Report 25259588 (Version 1)
Quarter: 2025Q2

REPORT INFORMATION
  Report Type: Spontaneous
  Country: US (occurrence: None)
  Receive Date: 20250430
  Receipt Date: 20250430
  Transmission Date: 20250716
  Serious: No
  Sender: FDA-CTU
  Company Number: None

PATIENT
  Age: 54 Year
  Sex: Female

DRUGS (1)
  1. FASLODEX [Suspect]
     Active Substance: FULVESTRANT
     Route: 030
     Dates: start: 20231110, end: 20250227

REACTIONS (3)
  - Muscle disorder [None]
  - Nodule [None]
  - Sciatica [None]

NARRATIVE: CASE EVENT DATE: 20250224
